FAERS Safety Report 6622059-3 (Version None)
Quarter: 2010Q1

REPORT INFORMATION
  Report Type: 
  Country: None (occurrence: None)
  Receive Date: 20100223
  Receipt Date: 20091024
  Transmission Date: 20100710
  Serious: No
  Sender: FDA-Public Use
  Company Number: 8053691

PATIENT
  Age: 26 Year
  Sex: Female

DRUGS (1)
  1. CIMZIA [Suspect]
     Indication: CROHN'S DISEASE
     Dosage: (400 MG Q 28 DAYS SUBCUTANEOUS)
     Route: 058
     Dates: start: 20091008

REACTIONS (1)
  - INJECTION SITE REACTION [None]
